FAERS Safety Report 26217619 (Version 1)
Quarter: 2025Q4

REPORT INFORMATION
  Report Type: Spontaneous
  Country: EU (occurrence: EU)
  Receive Date: 20251231
  Receipt Date: 20251231
  Transmission Date: 20260118
  Serious: Yes (Life-Threatening, Hospitalization)
  Sender: AMGEN
  Company Number: EU-AMGEN-ITASP2025254759

PATIENT
  Age: 9 Year
  Sex: Female

DRUGS (5)
  1. ECULIZUMAB [Suspect]
     Active Substance: ECULIZUMAB
     Indication: Renal-limited thrombotic microangiopathy
     Dosage: UNK, INFUSION
     Route: 065
  2. ECULIZUMAB [Suspect]
     Active Substance: ECULIZUMAB
     Dosage: UNK, INFUSION/ RESUMED
     Route: 065
  3. ECULIZUMAB [Suspect]
     Active Substance: ECULIZUMAB
     Dosage: UNK UNK, QWK
     Route: 065
  4. ANAKINRA [Concomitant]
     Active Substance: ANAKINRA
  5. RITUXIMAB [Concomitant]
     Active Substance: RITUXIMAB
     Indication: Renal-limited thrombotic microangiopathy

REACTIONS (3)
  - Traumatic intracranial haemorrhage [Unknown]
  - Hypertension [Unknown]
  - Posterior reversible encephalopathy syndrome [Unknown]
